FAERS Safety Report 23779323 (Version 1)
Quarter: 2024Q2

REPORT INFORMATION
  Report Type: Spontaneous
  Country: US (occurrence: None)
  Receive Date: 20240418
  Receipt Date: 20240418
  Transmission Date: 20240716
  Serious: No
  Sender: FDA-Public Use
  Company Number: None

PATIENT
  Age: 70 Year
  Sex: Female

DRUGS (6)
  1. SODIUM CHLORIDE [Suspect]
     Active Substance: SODIUM CHLORIDE
     Indication: Nasal dryness
     Dosage: OTHER QUANTITY : 4 INHALATION(S)?FREQUENCY : AS NEEDED?
     Route: 055
     Dates: start: 20240414, end: 20240414
  2. HYDROCHLOROTHIAZIDE [Concomitant]
     Active Substance: HYDROCHLOROTHIAZIDE
  3. EXEMESTANE [Concomitant]
     Active Substance: EXEMESTANE
  4. TYLENOL [Concomitant]
     Active Substance: ACETAMINOPHEN
  5. SUDAFED [Concomitant]
     Active Substance: PSEUDOEPHEDRINE HYDROCHLORIDE
  6. TUMS [Concomitant]
     Active Substance: CALCIUM CARBONATE

REACTIONS (4)
  - Application site pain [None]
  - Headache [None]
  - Product formulation issue [None]
  - Product label issue [None]

NARRATIVE: CASE EVENT DATE: 20240414
